FAERS Safety Report 9689248 (Version 2)
Quarter: 2013Q4

REPORT INFORMATION
  Report Type: Spontaneous
  Country: US (occurrence: US)
  Receive Date: 20131114
  Receipt Date: 20131212
  Transmission Date: 20140711
  Serious: No
  Sender: FDA-Public Use
  Company Number: US-PFIZER INC-2013324584

PATIENT
  Age: 42 Year
  Sex: Female
  Weight: 54.88 kg

DRUGS (4)
  1. LIPITOR [Suspect]
     Indication: BLOOD CHOLESTEROL ABNORMAL
     Dosage: 40 MG, DAILY
  2. LIPITOR [Suspect]
     Dosage: 40 MG, DAILY
     Dates: end: 2013
  3. CRESTOR [Suspect]
     Indication: BLOOD CHOLESTEROL ABNORMAL
     Dosage: 20 MG, DAILY
     Dates: start: 2013, end: 2013
  4. LAMICTAL [Concomitant]
     Dosage: 100 MG, DAILY

REACTIONS (3)
  - Muscle spasms [Unknown]
  - Pain in extremity [Unknown]
  - Drug ineffective [Unknown]
